FAERS Safety Report 25056054 (Version 1)
Quarter: 2025Q1

REPORT INFORMATION
  Report Type: Spontaneous
  Country: US (occurrence: US)
  Receive Date: 20250309
  Receipt Date: 20250309
  Transmission Date: 20250408
  Serious: Yes (Death, Other)
  Sender: AMGEN
  Company Number: US-AMGEN-USASP2025038906

PATIENT

DRUGS (1)
  1. PREDNISONE [Suspect]
     Active Substance: PREDNISONE
     Indication: Immunosuppression
     Route: 065

REACTIONS (12)
  - Infection [Fatal]
  - Disease recurrence [Fatal]
  - Acute myeloid leukaemia [Fatal]
  - Acute lymphocytic leukaemia [Fatal]
  - Lymphoma [Fatal]
  - Myelodysplastic syndrome [Fatal]
  - Plasma cell myeloma [Fatal]
  - Sickle cell disease [Fatal]
  - Acute graft versus host disease [Unknown]
  - Chronic graft versus host disease [Unknown]
  - Osteonecrosis [Unknown]
  - Eastern Cooperative Oncology Group performance status worsened [Unknown]
